FAERS Safety Report 17524437 (Version 1)
Quarter: 2020Q1

REPORT INFORMATION
  Report Type: Spontaneous
  Country: ES (occurrence: ES)
  Receive Date: 20200311
  Receipt Date: 20200311
  Transmission Date: 20200409
  Serious: Yes (Other)
  Sender: FDA-Public Use
  Company Number: ES-TEVA-2020-ES-1196824

PATIENT
  Age: 55 Year
  Sex: Female

DRUGS (4)
  1. BROMURO DE IPRATROPIO ALDO-UNION 500 MICROGRAMOS SOLUCION PARA INHALAC [Suspect]
     Active Substance: IPRATROPIUM BROMIDE
     Indication: BRONCHITIS
     Dosage: 1/12
     Dates: start: 202001, end: 202001
  2. CARBOCISTEINA (567A) [Suspect]
     Active Substance: CARBOCYSTEINE
     Indication: BRONCHITIS
     Dosage: 1/24
     Dates: start: 202001, end: 202001
  3. BUDESONIDA ALDO-UNION 0,5 MG/ML SUSPENSION PARA INHALACION POR NEBULIZ [Suspect]
     Active Substance: BUDESONIDE
     Indication: BRONCHITIS
     Dosage: 1/12
     Dates: start: 202001, end: 202001
  4. AMOXICILINA 1.000 MG 30 COMPRIMIDOS [Suspect]
     Active Substance: AMOXICILLIN
     Indication: BRONCHITIS
     Dosage: 1 GRAM
     Dates: start: 202001, end: 202001

REACTIONS (3)
  - Lip oedema [Unknown]
  - Oropharyngeal oedema [Unknown]
  - Urticaria [Unknown]

NARRATIVE: CASE EVENT DATE: 202001
